FAERS Safety Report 24695681 (Version 1)
Quarter: 2024Q4

REPORT INFORMATION
  Report Type: Spontaneous
  Country: US (occurrence: US)
  Receive Date: 20241204
  Receipt Date: 20241204
  Transmission Date: 20250115
  Serious: No
  Sender: PACIRA
  Company Number: US-ORG100016242-2024000242

PATIENT
  Age: 65 Year
  Sex: Female

DRUGS (1)
  1. ZILRETTA [Suspect]
     Active Substance: TRIAMCINOLONE ACETONIDE
     Indication: Meniscus injury
     Dosage: ONE INJECTION
     Route: 050
     Dates: start: 20240501, end: 20240501

REACTIONS (13)
  - Respiratory tract congestion [Unknown]
  - Bronchitis [Unknown]
  - Diarrhoea [Unknown]
  - Fatigue [Unknown]
  - Pyrexia [Unknown]
  - Feeling abnormal [Unknown]
  - Tenderness [Unknown]
  - Abdominal pain [Unknown]
  - Cough [Unknown]
  - Abdominal discomfort [Unknown]
  - Pruritus [Unknown]
  - Muscular weakness [Unknown]
  - Arthralgia [Unknown]

NARRATIVE: CASE EVENT DATE: 20240501
